FAERS Safety Report 14843846 (Version 13)
Quarter: 2019Q1

REPORT INFORMATION
  Report Type: Spontaneous
  Country: US (occurrence: US)
  Receive Date: 20180503
  Receipt Date: 20190214
  Transmission Date: 20190417
  Serious: Yes (Death, Hospitalization)
  Sender: FDA-Public Use
  Company Number: US-ACTELION-A-NJ2018-171559

PATIENT
  Age: 70 Year
  Sex: Female
  Weight: 56.24 kg

DRUGS (3)
  1. VELETRI [Suspect]
     Active Substance: EPOPROSTENOL
     Indication: PULMONARY HYPERTENSION
     Dosage: 37 NG/KG, PER MIN
     Route: 042
  2. VELETRI [Suspect]
     Active Substance: EPOPROSTENOL
     Dosage: 38 NG/KG, PER MIN
     Route: 042
  3. EPOPROSTENOL TEVA [Concomitant]

REACTIONS (9)
  - Cellulitis [Unknown]
  - Herpes zoster [Unknown]
  - Pneumonia [Unknown]
  - Anaemia [Unknown]
  - Dyspnoea [Unknown]
  - Emergency care [Unknown]
  - Death [Fatal]
  - Gastric polyps [Unknown]
  - Fluid overload [Unknown]

NARRATIVE: CASE EVENT DATE: 20181031
